FAERS Safety Report 8245884-4 (Version None)
Quarter: 2012Q1

REPORT INFORMATION
  Report Type: 
  Country: None (occurrence: None)
  Receive Date: 20120328
  Receipt Date: 20120328
  Transmission Date: 20120608
  Serious: No
  Sender: FDA-Public Use
  Company Number: None

PATIENT
  Sex: Male
  Weight: 68.0396 kg

DRUGS (3)
  1. PEGASYS [Suspect]
     Dosage: 180 MCG/5ML Q WEEK
  2. VICTRELIS [Suspect]
     Dosage: 200MG Q 8 HRS ORAL/INJECTION
     Route: 048
  3. RIBAVIRIN [Suspect]
     Dosage: 200MG BID PO
     Route: 048

REACTIONS (7)
  - FATIGUE [None]
  - IRRITABILITY [None]
  - MALAISE [None]
  - ANAEMIA [None]
  - DECREASED APPETITE [None]
  - COUGH [None]
  - WEIGHT DECREASED [None]
